FAERS Safety Report 9690762 (Version 1)
Quarter: 2013Q4

REPORT INFORMATION
  Report Type: Spontaneous
  Country: US (occurrence: None)
  Receive Date: 20131114
  Receipt Date: 20131114
  Transmission Date: 20140711
  Serious: Yes (Hospitalization)
  Sender: FDA-Public Use
  Company Number: None

PATIENT
  Age: 41 Year
  Sex: Female
  Weight: 65.77 kg

DRUGS (9)
  1. WARFARIN [Suspect]
     Indication: HYPERCOAGULATION
     Dosage: 1 PILL
     Route: 048
  2. ZOLPIDEM [Concomitant]
  3. PREDNISOLONE [Concomitant]
  4. OXYCODONE/APAP [Concomitant]
  5. METOPROLOL [Concomitant]
  6. LEVOFLOXACIN [Concomitant]
  7. PLAQUENIL [Concomitant]
  8. CARBAMAZEPINE [Concomitant]
  9. ELAVIL [Concomitant]

REACTIONS (1)
  - International normalised ratio increased [None]
